FAERS Safety Report 11727600 (Version 1)
Quarter: 2015Q4

REPORT INFORMATION
  Report Type: Spontaneous
  Country: SE (occurrence: SE)
  Receive Date: 20151112
  Receipt Date: 20151112
  Transmission Date: 20160304
  Serious: Yes (Hospitalization, Other)
  Sender: FDA-Public Use
  Company Number: SE-PFIZER INC-2015380892

PATIENT
  Age: 43 Year
  Sex: Female

DRUGS (5)
  1. OMEPRAZOLE. [Concomitant]
     Active Substance: OMEPRAZOLE
  2. ZYVOXID [Suspect]
     Active Substance: LINEZOLID
     Indication: MASTITIS BACTERIAL
     Dosage: 600 MG, 2X/DAY
     Route: 048
     Dates: start: 20150927, end: 20151011
  3. ZYVOXID [Suspect]
     Active Substance: LINEZOLID
     Indication: CORYNEBACTERIUM INFECTION
  4. ALVEDON [Concomitant]
     Active Substance: ACETAMINOPHEN
  5. NAPROXEN. [Concomitant]
     Active Substance: NAPROXEN

REACTIONS (5)
  - Dry mouth [Recovered/Resolved]
  - Dysgeusia [Recovered/Resolved]
  - Tooth discolouration [Recovered/Resolved]
  - Tooth deposit [Recovered/Resolved]
  - Tongue discolouration [Recovered/Resolved]

NARRATIVE: CASE EVENT DATE: 20151008
